FAERS Safety Report 21349639 (Version 2)
Quarter: 2022Q4

REPORT INFORMATION
  Report Type: Spontaneous
  Country: US (occurrence: US)
  Receive Date: 20220919
  Receipt Date: 20221122
  Transmission Date: 20230112
  Serious: No
  Sender: FDA-Public Use
  Company Number: US-GSK-US2022AMR132526

PATIENT
  Age: 20 Year
  Sex: Female

DRUGS (1)
  1. BENLYSTA [Suspect]
     Active Substance: BELIMUMAB
     Indication: Systemic lupus erythematosus
     Dosage: UNK UNK, Z (MONTHLY)
     Route: 058
     Dates: start: 202207, end: 2022

REACTIONS (5)
  - Erythema [Unknown]
  - Urticaria [Recovered/Resolved]
  - Pruritus [Recovered/Resolved]
  - Skin ulcer [Recovered/Resolved]
  - Drug hypersensitivity [Unknown]

NARRATIVE: CASE EVENT DATE: 20220101
